FAERS Safety Report 18566699 (Version 1)
Quarter: 2020Q4

REPORT INFORMATION
  Report Type: Spontaneous
  Country: US (occurrence: US)
  Receive Date: 20201201
  Receipt Date: 20201201
  Transmission Date: 20210114
  Serious: Yes (Hospitalization, Other)
  Sender: FDA-Public Use
  Company Number: US-TEVA-2020-US-1848950

PATIENT
  Age: 35 Year
  Sex: Male

DRUGS (7)
  1. PREDNISONE. [Suspect]
     Active Substance: PREDNISONE
     Indication: LUNG CONSOLIDATION
     Dosage: 50 MILLIGRAM DAILY; FOR 5 DAYS
     Route: 065
     Dates: start: 2017
  2. AMOXICILLIN CLAVULANATE [Concomitant]
     Active Substance: AMOXICILLIN\CLAVULANIC ACID
     Indication: LUNG CONSOLIDATION
     Dosage: FOR 10 DAYS
     Route: 065
     Dates: start: 2017
  3. DEXAMETHASONE. [Suspect]
     Active Substance: DEXAMETHASONE
     Indication: HAEMOPHAGOCYTIC LYMPHOHISTIOCYTOSIS
     Dosage: 40 MILLIGRAM DAILY; 4 DOSES
     Route: 042
     Dates: start: 201710
  4. MYCOPHENOLATE [Suspect]
     Active Substance: MYCOPHENOLIC ACID
     Indication: HAEMOPHAGOCYTIC LYMPHOHISTIOCYTOSIS
     Dosage: 1000 MILLIGRAM DAILY;
     Route: 065
     Dates: start: 201802
  5. DEXAMETHASONE. [Suspect]
     Active Substance: DEXAMETHASONE
     Indication: HAEMOPHAGOCYTIC LYMPHOHISTIOCYTOSIS
     Route: 042
     Dates: start: 201712
  6. LEVOFLOXACIN. [Concomitant]
     Active Substance: LEVOFLOXACIN
     Indication: LUNG CONSOLIDATION
     Dosage: 750 MILLIGRAM DAILY; FOR 7 DAYS
     Route: 065
     Dates: start: 2017
  7. DEXAMETHASONE. [Suspect]
     Active Substance: DEXAMETHASONE
     Indication: HAEMOPHAGOCYTIC LYMPHOHISTIOCYTOSIS
     Route: 042
     Dates: start: 201801

REACTIONS (11)
  - Impaired healing [Unknown]
  - Staphylococcal infection [Unknown]
  - Pneumonia fungal [Unknown]
  - Dysarthria [Unknown]
  - Candida infection [Unknown]
  - Cushingoid [Unknown]
  - Drug ineffective [Unknown]
  - Diffuse large B-cell lymphoma [Unknown]
  - Epstein-Barr virus associated lymphoma [Unknown]
  - Facial paralysis [Unknown]
  - Asthenia [Unknown]

NARRATIVE: CASE EVENT DATE: 2017
